FAERS Safety Report 13229326 (Version 1)
Quarter: 2017Q1

REPORT INFORMATION
  Report Type: Spontaneous
  Country: US (occurrence: US)
  Receive Date: 20170214
  Receipt Date: 20170214
  Transmission Date: 20170428
  Serious: No
  Sender: FDA-Public Use
  Company Number: US-AUROBINDO-AUR-APU-2016-08310

PATIENT
  Age: 54 Year
  Sex: Female

DRUGS (1)
  1. SIMVASTATIN TABLETS USP 5 MG (SIMVASTATIN) TABLET, 5MG [Suspect]
     Active Substance: SIMVASTATIN
     Indication: BLOOD CHOLESTEROL INCREASED
     Dosage: 1 DF, ONCE A DAY
     Route: 065
     Dates: start: 20160617

REACTIONS (4)
  - Tongue movement disturbance [Not Recovered/Not Resolved]
  - Urticaria [Not Recovered/Not Resolved]
  - Hypoaesthesia [Not Recovered/Not Resolved]
  - Asthma [Not Recovered/Not Resolved]
